FAERS Safety Report 21582683 (Version 1)
Quarter: 2022Q4

REPORT INFORMATION
  Report Type: Spontaneous
  Country: FR (occurrence: FR)
  Receive Date: 20221111
  Receipt Date: 20221111
  Transmission Date: 20230113
  Serious: Yes (Other)
  Sender: FDA-Public Use
  Company Number: FR-UCBSA-2022064469

PATIENT
  Age: 57 Year
  Sex: Female

DRUGS (1)
  1. CIMZIA [Suspect]
     Active Substance: CERTOLIZUMAB PEGOL
     Indication: Axial spondyloarthritis
     Dosage: UNK
     Dates: end: 20161001

REACTIONS (1)
  - Neuropathy peripheral [Recovered/Resolved with Sequelae]

NARRATIVE: CASE EVENT DATE: 20161001
